FAERS Safety Report 4308769-1 (Version None)
Quarter: 2004Q1

REPORT INFORMATION
  Report Type: 
  Country: None (occurrence: None)
  Receive Date: 20040302
  Receipt Date: 20040125
  Transmission Date: 20041129
  Serious: Yes (Death, Life-Threatening, Hospitalization)
  Sender: FDA-Public Use
  Company Number: SE-BRISTOL-MYERS SQUIBB COMPANY-12487880

PATIENT
  Age: 78 Year
  Sex: Female

DRUGS (3)
  1. TAXOL [Suspect]
     Indication: OVARIAN CANCER
     Dosage: THERAPY DATES: 03-SEP-2003 TO 10-DEC-2003
     Route: 042
     Dates: start: 20031210, end: 20031210
  2. TENORMIN [Concomitant]
     Indication: HYPERTENSION
  3. TRADOLAN [Concomitant]
     Indication: PAIN

REACTIONS (2)
  - ALVEOLITIS [None]
  - RESPIRATORY FAILURE [None]
